FAERS Safety Report 19302820 (Version 14)
Quarter: 2022Q1

REPORT INFORMATION
  Report Type: Other
  Country: DE (occurrence: None)
  Receive Date: 20210525
  Receipt Date: 20220106
  Transmission Date: 20220423
  Serious: Yes (Hospitalization, Other)
  Sender: FDA-Public Use
  Company Number: DE-ROCHE-2819557

PATIENT
  Age: 60 Year
  Sex: Female
  Weight: 100 kg

DRUGS (14)
  1. OCRELIZUMAB [Suspect]
     Active Substance: OCRELIZUMAB
     Indication: Primary progressive multiple sclerosis
     Route: 042
     Dates: start: 20190305, end: 20210316
  2. OCRELIZUMAB [Suspect]
     Active Substance: OCRELIZUMAB
     Route: 042
     Dates: start: 20180821, end: 20180904
  3. CEFAVIT [Concomitant]
     Indication: Prophylaxis
     Route: 048
     Dates: start: 20171101
  4. NORSPAN [Concomitant]
     Active Substance: BUPRENORPHINE
     Indication: Pain
     Route: 062
     Dates: start: 20170301, end: 20190623
  5. NORSPAN [Concomitant]
     Active Substance: BUPRENORPHINE
     Route: 062
     Dates: start: 20190624
  6. AMITRIPTYLINE HYDROCHLORIDE [Concomitant]
     Active Substance: AMITRIPTYLINE HYDROCHLORIDE
     Route: 048
     Dates: start: 20171001
  7. MOVICOL [Concomitant]
     Active Substance: POLYETHYLENE GLYCOL 3350\POTASSIUM CHLORIDE\SODIUM BICARBONATE\SODIUM CHLORIDE
     Indication: Constipation
     Route: 048
     Dates: start: 20170301
  8. NABIXIMOLS [Concomitant]
     Active Substance: NABIXIMOLS
     Indication: Muscle spasticity
     Route: 048
     Dates: start: 20180104
  9. OPIPRAMOL [Concomitant]
     Active Substance: OPIPRAMOL
     Indication: Anxiety disorder
     Route: 048
     Dates: start: 20150101
  10. LYRICA [Concomitant]
     Active Substance: PREGABALIN
     Indication: Neuralgia
     Route: 048
     Dates: start: 20171101
  11. PANTOPRAZOLE SODIUM [Concomitant]
     Active Substance: PANTOPRAZOLE SODIUM
     Route: 048
     Dates: start: 20160101
  12. DICLOFENAC DIETHYLAMINE [Concomitant]
     Active Substance: DICLOFENAC DIETHYLAMINE
     Indication: Pain
     Route: 062
     Dates: start: 20180401
  13. TIZANIDINE [Concomitant]
     Active Substance: TIZANIDINE
     Indication: Muscle spasticity
     Route: 048
     Dates: start: 20180104
  14. IBUPROFEN [Concomitant]
     Active Substance: IBUPROFEN
     Indication: Pain
     Route: 048
     Dates: start: 20150101

REACTIONS (6)
  - Gastroenteritis [Recovered/Resolved]
  - Gastritis [Recovered/Resolved]
  - Enteritis [Recovered/Resolved]
  - Duodenitis [Recovered/Resolved]
  - Cytomegalovirus colitis [Recovered/Resolved with Sequelae]
  - Colitis [Recovered/Resolved]

NARRATIVE: CASE EVENT DATE: 20210321
